FAERS Safety Report 15091763 (Version 1)
Quarter: 2018Q2

REPORT INFORMATION
  Report Type: Report from Study
  Country: US (occurrence: US)
  Receive Date: 20180629
  Receipt Date: 20180629
  Transmission Date: 20180711
  Serious: No
  Sender: FDA-Public Use
  Company Number: US-AMGEN-USASP2011027412

PATIENT
  Age: 71 Year
  Sex: Female

DRUGS (7)
  1. THYROID PREPARATIONS [Concomitant]
     Active Substance: UNSPECIFIED INGREDIENT
  2. CELEBREX [Concomitant]
     Active Substance: CELECOXIB
  3. CALCIUM [Concomitant]
     Active Substance: CALCIUM
  4. SULFASALAZINE. [Concomitant]
     Active Substance: SULFASALAZINE
  5. PROLIA [Suspect]
     Active Substance: DENOSUMAB
     Indication: OSTEOPOROSIS POSTMENOPAUSAL
     Dosage: 60 MG, Q6MO
     Dates: start: 20110427
  6. MULTIVITAMIN                       /00097801/ [Concomitant]
     Active Substance: VITAMINS
  7. TYLENOL [Concomitant]
     Active Substance: ACETAMINOPHEN
     Dosage: UNK UNK, PRN

REACTIONS (3)
  - Arthralgia [Recovering/Resolving]
  - Pain in extremity [Recovering/Resolving]
  - Dyspepsia [Recovered/Resolved]
